FAERS Safety Report 8239450-4 (Version None)
Quarter: 2012Q1

REPORT INFORMATION
  Report Type: 
  Country: None (occurrence: None)
  Receive Date: 20120328
  Receipt Date: 20120319
  Transmission Date: 20120608
  Serious: Yes (Death)
  Sender: FDA-Public Use
  Company Number: JP-AMGEN-JPNSP2012018631

PATIENT
  Age: 74 Year
  Sex: Male

DRUGS (21)
  1. PIRARUBICIN [Suspect]
     Indication: DIFFUSE LARGE B-CELL LYMPHOMA
  2. BRUFEN                             /00109201/ [Concomitant]
     Dosage: 200 MG, UNK
     Route: 048
     Dates: start: 20110108, end: 20110312
  3. SENNOSIDES A+B [Concomitant]
     Dosage: UNK
     Dates: start: 20110402
  4. GRAN [Suspect]
     Dosage: 150 MG, UNK
     Route: 058
     Dates: start: 20110106, end: 20110326
  5. VINCRISTINE [Suspect]
     Indication: DIFFUSE LARGE B-CELL LYMPHOMA
  6. POLARAMINE [Concomitant]
     Dosage: 2 MG, UNK
     Route: 048
     Dates: start: 20110108, end: 20110312
  7. POLARAMINE [Concomitant]
     Dosage: UNK
     Dates: start: 20110112
  8. HARNAL D [Concomitant]
     Dosage: 0.2 MG, QD
     Route: 048
     Dates: end: 20110402
  9. SENNOSIDES A+B [Concomitant]
     Indication: CONSTIPATION
     Dosage: 12 MG, QD
     Route: 048
     Dates: start: 20101222, end: 20110402
  10. MABTHERA [Suspect]
     Indication: DIFFUSE LARGE B-CELL LYMPHOMA
     Dosage: 600 MG, UNK
     Route: 042
     Dates: start: 20110108
  11. CYCLOPHOSPHAMIDE [Suspect]
     Indication: DIFFUSE LARGE B-CELL LYMPHOMA
  12. GARENOXACIN MESYLATE [Concomitant]
     Dosage: 400 MG, QD
     Route: 048
     Dates: start: 20110326, end: 20110402
  13. MAGNESIUM OXIDE [Concomitant]
     Indication: CONSTIPATION
     Dosage: 9 MG, QD
     Route: 048
     Dates: start: 20101221, end: 20110402
  14. PREDNISOLONE [Suspect]
     Indication: DIFFUSE LARGE B-CELL LYMPHOMA
  15. AMLODIPINE [Concomitant]
     Dosage: 5 MG, QD
     Route: 048
     Dates: end: 20110402
  16. SEROTONE [Concomitant]
     Dosage: 10 MG, UNK
     Route: 042
     Dates: start: 20101220, end: 20110312
  17. OLMESARTAN MEDOXOMIL [Concomitant]
     Dosage: 20 MG, QD
     Route: 048
     Dates: end: 20110402
  18. DEPAS [Concomitant]
     Dosage: 0.5 MG, QD
     Route: 048
     Dates: end: 20110402
  19. BRUFEN                             /00109201/ [Concomitant]
     Dosage: UNK
     Dates: start: 20110312
  20. SOLU-CORTEF [Concomitant]
     Dosage: 100 MG, UNK
     Route: 042
     Dates: start: 20110108, end: 20110312
  21. GASTER                             /00706001/ [Concomitant]
     Dosage: 80 MG, QD
     Route: 048
     Dates: start: 20110118, end: 20110402

REACTIONS (1)
  - INTERSTITIAL LUNG DISEASE [None]
